FAERS Safety Report 25776251 (Version 1)
Quarter: 2025Q3

REPORT INFORMATION
  Report Type: Spontaneous
  Country: US (occurrence: US)
  Receive Date: 20250909
  Receipt Date: 20250909
  Transmission Date: 20251020
  Serious: No
  Sender: DOMPE FARMACEUTICI
  Company Number: US-FARMAPROD-202502-0525

PATIENT
  Age: 67 Year
  Sex: Male

DRUGS (3)
  1. OXERVATE [Suspect]
     Active Substance: CENEGERMIN-BKBJ
     Indication: Neurotrophic keratopathy
     Route: 047
     Dates: start: 20250206
  2. OFLOXACIN [Concomitant]
     Active Substance: OFLOXACIN
  3. TIMOLOL MALEATE [Concomitant]
     Active Substance: TIMOLOL MALEATE

REACTIONS (3)
  - Therapy interrupted [Unknown]
  - Eye pain [Not Recovered/Not Resolved]
  - Eyelid pain [Unknown]

NARRATIVE: CASE EVENT DATE: 20250221
